FAERS Safety Report 11182206 (Version 1)
Quarter: 2015Q2

REPORT INFORMATION
  Report Type: Spontaneous
  Country: US (occurrence: US)
  Receive Date: 20150611
  Receipt Date: 20150611
  Transmission Date: 20150821
  Serious: No
  Sender: FDA-Public Use
  Company Number: US-GE HEALTHCARE MEDICAL DIAGNOSTICS-TTSC-PR-1502S-0004

PATIENT
  Age: 55 Year
  Sex: Female

DRUGS (3)
  1. TECHNETIUM TC99M TSC [Suspect]
     Active Substance: TECHNETIUM TC-99M SULFUR COLLOID
     Indication: LYMPHADENOPATHY
     Dosage: DOSE NOT REPORTED
     Route: 065
     Dates: start: 20130827, end: 20130827
  2. TECHNETIUM TC99M TSC [Suspect]
     Active Substance: TECHNETIUM TC-99M SULFUR COLLOID
     Indication: DIAGNOSTIC PROCEDURE
  3. LIPIODOL [Concomitant]
     Active Substance: ETHIODIZED OIL
     Indication: HYPERCHOLESTEROLAEMIA

REACTIONS (2)
  - No adverse event [Recovered/Resolved]
  - Radioisotope scan abnormal [Unknown]

NARRATIVE: CASE EVENT DATE: 20130827
